FAERS Safety Report 10045004 (Version 4)
Quarter: 2014Q4

REPORT INFORMATION
  Report Type: Report from Study
  Country: US (occurrence: US)
  Receive Date: 20140328
  Receipt Date: 20141208
  Transmission Date: 20150528
  Serious: Yes (Hospitalization)
  Sender: FDA-Public Use
  Company Number: US-FRI-1000064765

PATIENT
  Age: 43 Year
  Sex: Male
  Weight: 73.8 kg

DRUGS (4)
  1. VILAZODONE (OPEN-LABEL) [Suspect]
     Active Substance: VILAZODONE
     Indication: MAJOR DEPRESSION
     Dosage: 40 MG
     Route: 048
     Dates: start: 20131114
  2. VILAZODONE (RUN IN) [Suspect]
     Active Substance: VILAZODONE
     Indication: MAJOR DEPRESSION
     Dosage: 20 MG
     Route: 048
     Dates: start: 20131107, end: 20131113
  3. LISINOPRIL. [Concomitant]
     Active Substance: LISINOPRIL
     Indication: HYPERTENSION
     Dosage: 10 MG
     Route: 048
     Dates: start: 20130913
  4. VILAZODONE (RUN IN) [Suspect]
     Active Substance: VILAZODONE
     Indication: MAJOR DEPRESSION
     Dosage: 10 MG
     Route: 048
     Dates: start: 20131031, end: 20131106

REACTIONS (1)
  - Hypoaesthesia [Recovered/Resolved]

NARRATIVE: CASE EVENT DATE: 20140315
